FAERS Safety Report 5757475-5 (Version None)
Quarter: 2008Q2

REPORT INFORMATION
  Report Type: 
  Country: None (occurrence: None)
  Receive Date: 20080603
  Receipt Date: 20071206
  Transmission Date: 20081010
  Serious: No
  Sender: FDA-Public Use
  Company Number: US-BOEHRINGER INGELHEIM GMBH, GERMANY-2007-BP-01809BP

PATIENT
  Sex: Female
  Weight: 66 kg

DRUGS (20)
  1. MIRAPEX [Suspect]
     Indication: PAIN IN EXTREMITY
     Route: 048
     Dates: start: 20030310, end: 20050401
  2. XANAX [Concomitant]
     Dates: start: 20070501
  3. TRAMADOL HCL [Concomitant]
     Indication: PAIN IN EXTREMITY
  4. PREMARIN [Concomitant]
     Indication: HORMONE REPLACEMENT THERAPY
  5. ALPRAZOLAM [Concomitant]
     Indication: STRESS
  6. METRONIDAZOLE HCL [Concomitant]
     Indication: ACNE
  7. DOXYCYCLINE [Concomitant]
     Indication: ACNE
  8. CLARINEX [Concomitant]
  9. ULTRACET [Concomitant]
  10. CELEXA [Concomitant]
  11. NASONEX [Concomitant]
  12. XALATAN [Concomitant]
  13. SULFAMETHOXAZOLE [Concomitant]
  14. OMEPRAZOLE [Concomitant]
  15. HYDROCODONE [Concomitant]
  16. METROCREAM [Concomitant]
  17. MINOCYCLINE HCL [Concomitant]
  18. TRIAMTERENE AND HYDROCHLOROTHIAZIDE [Concomitant]
  19. DIAZEPAM [Concomitant]
  20. DEPO-MEDROL [Concomitant]
     Dates: start: 20040316

REACTIONS (6)
  - COMPULSIVE SHOPPING [None]
  - DEPRESSION [None]
  - EMOTIONAL DISTRESS [None]
  - INJURY [None]
  - OBSESSIVE-COMPULSIVE DISORDER [None]
  - PATHOLOGICAL GAMBLING [None]
